FAERS Safety Report 6407467-8 (Version None)
Quarter: 2009Q4

REPORT INFORMATION
  Report Type: 
  Country: None (occurrence: None)
  Receive Date: 20091015
  Receipt Date: 20091007
  Transmission Date: 20100525
  Serious: Yes (Hospitalization)
  Sender: FDA-Public Use
  Company Number: 2009EU003839

PATIENT
  Age: 2 Year
  Sex: Male
  Weight: 12.1 kg

DRUGS (6)
  1. TACROLIMUS            SYSTEMIC (TACOLIMUS) [Suspect]
     Indication: RENAL TRANSPLANT
     Dosage: /D, 2MG, BID
     Dates: end: 20090901
  2. TEICOPLANIN (TEICOPLANIN) 120MG [Suspect]
     Dosage: 120MG, /D, IV NOS
     Route: 042
     Dates: start: 20090904, end: 20090910
  3. CEFTAZIDIME [Concomitant]
  4. GENTAMICIN [Concomitant]
  5. PREDNISOLONE (PRENISOLONE) [Concomitant]
  6. RANITIDINE HCL [Concomitant]

REACTIONS (2)
  - DRUG INTERACTION [None]
  - DRUG LEVEL INCREASED [None]
